FAERS Safety Report 11677180 (Version 1)
Quarter: 2015Q4

REPORT INFORMATION
  Report Type: Spontaneous
  Country: US (occurrence: US)
  Receive Date: 20151028
  Receipt Date: 20151028
  Transmission Date: 20160304
  Serious: Yes (Other)
  Sender: FDA-Public Use
  Company Number: US-PFIZER INC-2015346139

PATIENT
  Age: 34 Year
  Sex: Female
  Weight: 59 kg

DRUGS (8)
  1. TYVASO [Interacting]
     Active Substance: TREPROSTINIL
     Indication: PULMONARY ARTERIAL HYPERTENSION
     Dosage: 18-54 MICROGRAMS (3-9 BREATHS) FOUR TIMES DAILY
     Dates: start: 20121123
  2. TYVASO [Interacting]
     Active Substance: TREPROSTINIL
     Dosage: 8-54 MICROGRAMS,4X/DAY
     Dates: start: 20121126
  3. LETAIRIS [Suspect]
     Active Substance: AMBRISENTAN
     Dosage: 10 MG, 1X/DAY
     Dates: start: 20121123
  4. LETAIRIS [Suspect]
     Active Substance: AMBRISENTAN
     Dosage: 5 MG, 1X/DAY
     Dates: start: 20120120
  5. ADCIRCA [Concomitant]
     Active Substance: TADALAFIL
     Dosage: UNK
  6. WARFARIN SODIUM. [Concomitant]
     Active Substance: WARFARIN SODIUM
     Dosage: UNK
  7. ROBITUSSIN (GUAIFENESIN) [Interacting]
     Active Substance: GUAIFENESIN
     Dosage: UNK
  8. COUMADINE [Concomitant]
     Active Substance: WARFARIN SODIUM
     Dosage: UNK

REACTIONS (5)
  - Pulmonary arterial hypertension [Not Recovered/Not Resolved]
  - Chest discomfort [Unknown]
  - Echocardiogram abnormal [Unknown]
  - Chest pain [Unknown]
  - Drug interaction [Unknown]

NARRATIVE: CASE EVENT DATE: 201504
